FAERS Safety Report 4788572-9 (Version None)
Quarter: 2005Q4

REPORT INFORMATION
  Report Type: 
  Country: None (occurrence: None)
  Receive Date: 20051005
  Receipt Date: 20051005
  Transmission Date: 20060501
  Serious: Yes (Life-Threatening, Hospitalization)
  Sender: FDA-Public Use
  Company Number: None

PATIENT
  Age: 75 Year
  Sex: Female

DRUGS (11)
  1. COUMADIN [Suspect]
     Dosage: 3.75 PO ON ALL DAYS EXCEPT FRI, 7.5 MG PO
     Route: 048
  2. CLOPIDOGREL 75MG [Suspect]
     Dosage: PO QD
     Route: 048
  3. FUROSEMIDE [Concomitant]
  4. CARVEDILOL [Concomitant]
  5. CALCIUM GLUCONATE [Concomitant]
  6. LOSARTAN POTASSIUM [Concomitant]
  7. EZETIMIBE [Concomitant]
  8. ESOMEPRAZOLE [Concomitant]
  9. FEXOFENADINE HCL [Concomitant]
  10. FLUVASTATIN [Concomitant]
  11. POTASSIUM CHLORIDE [Concomitant]

REACTIONS (3)
  - INTERNATIONAL NORMALISED RATIO DECREASED [None]
  - INTESTINAL HAEMORRHAGE [None]
  - RECTAL HAEMORRHAGE [None]
